FAERS Safety Report 4482400-7 (Version None)
Quarter: 2004Q4

REPORT INFORMATION
  Report Type: 
  Country: None (occurrence: None)
  Receive Date: 20041022
  Receipt Date: 20040419
  Transmission Date: 20050328
  Serious: No
  Sender: FDA-Public Use
  Company Number: US-BRISTOL-MYERS SQUIBB COMPANY-12571139

PATIENT
  Age: 79 Year
  Sex: Female

DRUGS (5)
  1. BUSPAR [Suspect]
     Indication: ANXIETY
     Route: 048
     Dates: start: 20040413
  2. SYNTHROID [Concomitant]
  3. FOSAMAX [Concomitant]
  4. MYSOLINE [Concomitant]
  5. ATIVAN [Concomitant]
     Dates: end: 20040412

REACTIONS (3)
  - ANOREXIA [None]
  - INSOMNIA [None]
  - TREMOR [None]
